FAERS Safety Report 7957043-0 (Version None)
Quarter: 2011Q4

REPORT INFORMATION
  Report Type: 
  Country: None (occurrence: None)
  Receive Date: 20111205
  Receipt Date: 20111123
  Transmission Date: 20120403
  Serious: Yes (Other)
  Sender: FDA-Public Use
  Company Number: IT-ROCHE-1016612

PATIENT
  Sex: Male
  Weight: 74 kg

DRUGS (4)
  1. AVASTIN [Suspect]
     Indication: RENAL CELL CARCINOMA
     Route: 042
     Dates: start: 20100507
  2. LEVOTHYROXINE SODIUM [Concomitant]
     Dates: start: 20081101
  3. PLENDIL [Concomitant]
     Dates: start: 19870101
  4. REPAGLINIDE [Concomitant]
     Dates: start: 20081202

REACTIONS (2)
  - ABDOMINAL MASS [None]
  - FISTULA [None]
